FAERS Safety Report 6678759-2 (Version None)
Quarter: 2010Q2

REPORT INFORMATION
  Report Type: 
  Country: None (occurrence: None)
  Receive Date: 20100413
  Receipt Date: 20100331
  Transmission Date: 20101027
  Serious: Yes (Hospitalization)
  Sender: FDA-Public Use
  Company Number: DE-RANBAXY-2010RR-33039

PATIENT
  Age: 43 Year
  Sex: Male
  Weight: 71 kg

DRUGS (8)
  1. GABAPENTIN [Suspect]
     Indication: NEURALGIA
     Dosage: 300 MG, QD
     Route: 048
     Dates: start: 20090501, end: 20100101
  2. METAMIZOLE [Concomitant]
  3. TARGIN [Concomitant]
  4. AMITRYPTILENE [Concomitant]
  5. ACETYLCYSTEINE [Concomitant]
  6. NEURONTIN [Concomitant]
  7. PARACETAMOL [Concomitant]
  8. IBUPROFEN [Concomitant]

REACTIONS (2)
  - HEPATITIS ACUTE [None]
  - JAUNDICE [None]
